FAERS Safety Report 7921831-7 (Version None)
Quarter: 2011Q4

REPORT INFORMATION
  Report Type: 
  Country: None (occurrence: None)
  Receive Date: 20111117
  Receipt Date: 20111109
  Transmission Date: 20120403
  Serious: Yes (Death, Life-Threatening, Hospitalization)
  Sender: FDA-Public Use
  Company Number: US-ABBOTT-11P-163-0720770-00

PATIENT
  Sex: Female
  Weight: 80.358 kg

DRUGS (6)
  1. TRIAMCINOLONE [Concomitant]
     Indication: PSORIASIS
     Dosage: 2-15 G QD-BID, PRN
     Dates: start: 20040505
  2. HUMIRA [Suspect]
     Indication: PSORIASIS
     Route: 058
     Dates: start: 20090811, end: 20090811
  3. HUMIRA [Suspect]
     Dates: start: 20100930, end: 20110420
  4. TRIAMCINOLONE [Concomitant]
  5. HUMIRA [Suspect]
     Route: 058
     Dates: start: 20090811, end: 20100701
  6. LEVOTHYROXINE SODIUM [Concomitant]
     Indication: THYROID DISORDER
     Dates: start: 20080101

REACTIONS (1)
  - MYOCARDIAL INFARCTION [None]
